FAERS Safety Report 24412401 (Version 1)
Quarter: 2024Q4

REPORT INFORMATION
  Report Type: Spontaneous
  Country: US (occurrence: None)
  Receive Date: 20241008
  Receipt Date: 20241008
  Transmission Date: 20250115
  Serious: Yes (Other)
  Sender: Public
  Company Number: None

PATIENT
  Age: 63 Year
  Sex: Female
  Weight: 112.94 kg

DRUGS (1)
  1. LISINOPRIL [Suspect]
     Active Substance: LISINOPRIL
     Indication: Hypertension
     Dosage: FREQUENCY : DAILY;?
     Dates: start: 20240710, end: 20240925

REACTIONS (7)
  - Cough [None]
  - Oropharyngeal pain [None]
  - Inflammation [None]
  - Chills [None]
  - Headache [None]
  - Illness [None]
  - Therapy cessation [None]

NARRATIVE: CASE EVENT DATE: 20240710
